FAERS Safety Report 21543489 (Version 1)
Quarter: 2022Q4

REPORT INFORMATION
  Report Type: Spontaneous
  Country: JP (occurrence: None)
  Receive Date: 20221102
  Receipt Date: 20221102
  Transmission Date: 20230113
  Serious: Yes (Other)
  Sender: FDA-Public Use
  Company Number: 2022A361658

PATIENT
  Age: 10 Year
  Sex: Male
  Weight: 35.1 kg

DRUGS (12)
  1. QUETIAPINE [Suspect]
     Active Substance: QUETIAPINE
     Indication: Intentional self-injury
     Dosage: UNK UNK, UNKNOWN FREQ.
     Route: 048
  2. QUETIAPINE [Suspect]
     Active Substance: QUETIAPINE
     Indication: Aggression
     Dosage: UNK UNK, UNKNOWN FREQ.
     Route: 048
  3. QUETIAPINE [Suspect]
     Active Substance: QUETIAPINE
     Indication: Agitation
     Dosage: UNK UNK, UNKNOWN FREQ.
     Route: 048
  4. QUETIAPINE [Suspect]
     Active Substance: QUETIAPINE
     Indication: Sleep disorder
     Dosage: UNK UNK, UNKNOWN FREQ.
     Route: 048
  5. RISPERIDONE [Suspect]
     Active Substance: RISPERIDONE
     Indication: Intentional self-injury
     Dosage: UNK UNK, UNKNOWN FREQ.
     Route: 048
  6. RISPERIDONE [Suspect]
     Active Substance: RISPERIDONE
     Indication: Aggression
     Dosage: UNK UNK, UNKNOWN FREQ.
     Route: 048
  7. RISPERIDONE [Suspect]
     Active Substance: RISPERIDONE
     Indication: Agitation
     Dosage: UNK UNK, UNKNOWN FREQ.
     Route: 048
  8. RISPERIDONE [Suspect]
     Active Substance: RISPERIDONE
     Indication: Sleep disorder
     Dosage: UNK UNK, UNKNOWN FREQ.
     Route: 048
  9. ARIPIPRAZOLE [Suspect]
     Active Substance: ARIPIPRAZOLE
     Indication: Intentional self-injury
     Dosage: UNK UNK, UNKNOWN FREQ.
     Route: 048
  10. ARIPIPRAZOLE [Suspect]
     Active Substance: ARIPIPRAZOLE
     Indication: Aggression
     Dosage: UNK UNK, UNKNOWN FREQ.
     Route: 048
  11. ARIPIPRAZOLE [Suspect]
     Active Substance: ARIPIPRAZOLE
     Indication: Agitation
     Dosage: UNK UNK, UNKNOWN FREQ.
     Route: 048
  12. ARIPIPRAZOLE [Suspect]
     Active Substance: ARIPIPRAZOLE
     Indication: Sleep disorder
     Dosage: UNK UNK, UNKNOWN FREQ.
     Route: 048

REACTIONS (3)
  - Dysphagia [Unknown]
  - Extrapyramidal disorder [Unknown]
  - Off label use [Unknown]
